FAERS Safety Report 5648151-8 (Version None)
Quarter: 2008Q1

REPORT INFORMATION
  Report Type: 
  Country: None (occurrence: None)
  Receive Date: 20080229
  Receipt Date: 20080218
  Transmission Date: 20080703
  Serious: Yes (Life-Threatening, Hospitalization)
  Sender: FDA-Public Use
  Company Number: 8029983

PATIENT
  Age: 43 Year
  Sex: Female

DRUGS (5)
  1. KEPPRA [Suspect]
     Indication: HUNTINGTON'S CHOREA
     Dosage: 1000 MG 2/D PO
     Route: 048
     Dates: start: 20070101
  2. ZYPREXA [Suspect]
     Indication: HUNTINGTON'S CHOREA
     Dosage: 5 MG 3/D PO
     Route: 048
     Dates: start: 20070101
  3. DEPRAX /00447702/ [Suspect]
     Indication: HUNTINGTON'S CHOREA
     Dosage: 50 MG 1/D PO
     Route: 048
     Dates: start: 20070101
  4. SEROQUEL [Suspect]
     Indication: HUNTINGTON'S CHOREA
     Dosage: 25 MG 3/D PO
     Route: 048
     Dates: start: 20071201, end: 20080120
  5. IDALPREM [Concomitant]

REACTIONS (2)
  - DRUG INTERACTION [None]
  - NEUROLEPTIC MALIGNANT SYNDROME [None]
